FAERS Safety Report 8592345-9 (Version None)
Quarter: 2012Q3

REPORT INFORMATION
  Report Type: 
  Country: None (occurrence: None)
  Receive Date: 20120814
  Receipt Date: 20120807
  Transmission Date: 20120928
  Serious: Yes (Hospitalization, Other)
  Sender: FDA-Public Use
  Company Number: FR-PFIZER INC-2009199852

PATIENT
  Age: 74 Year
  Sex: Male

DRUGS (4)
  1. ZANEDIP [Concomitant]
     Indication: HYPERTENSION
  2. ZOFENIL [Concomitant]
     Indication: HYPERTENSION
  3. PREVISCAN [Concomitant]
     Indication: VENA CAVA THROMBOSIS
     Dosage: EVERY DAY
  4. SUTENT [Suspect]
     Indication: RENAL CANCER METASTATIC
     Dosage: 50MG CYCLIC, 4 WEEKS IN A ROW, 2 WEEKS OFF.
     Route: 048
     Dates: start: 20070720

REACTIONS (3)
  - ANAEMIA [None]
  - HAEMATEMESIS [None]
  - OESOPHAGITIS ULCERATIVE [None]
